FAERS Safety Report 5322452-5 (Version None)
Quarter: 2007Q1

REPORT INFORMATION
  Report Type: 
  Country: None (occurrence: None)
  Receive Date: 20070220
  Receipt Date: 20061031
  Transmission Date: 20070707
  Serious: No
  Sender: FDA-Public Use
  Company Number: TPA2006A01992

PATIENT
  Age: 70 Year
  Sex: Female

DRUGS (1)
  1. ROZEREM [Suspect]
     Indication: SLEEP DISORDER
     Dosage: 1 TAB AT BEDTIME, PER ORAL
     Route: 048

REACTIONS (1)
  - POOR QUALITY SLEEP [None]
